FAERS Safety Report 7957601-3 (Version None)
Quarter: 2011Q4

REPORT INFORMATION
  Report Type: 
  Country: None (occurrence: None)
  Receive Date: 20111205
  Receipt Date: 20111125
  Transmission Date: 20120403
  Serious: Yes (Hospitalization)
  Sender: FDA-Public Use
  Company Number: JP-NOVOPROD-340304

PATIENT

DRUGS (5)
  1. CRESTOR [Concomitant]
     Dates: start: 20111101
  2. LYRICA [Concomitant]
     Dates: start: 20111101
  3. VICTOZA [Suspect]
     Indication: TYPE 2 DIABETES MELLITUS
     Dosage: 0.6 MG, UNK
     Route: 058
     Dates: start: 20111101
  4. MAGNESIUM SULFATE [Concomitant]
     Dates: start: 20111101
  5. AMLODIPINE [Concomitant]
     Dates: start: 20111101

REACTIONS (1)
  - MALLORY-WEISS SYNDROME [None]
